FAERS Safety Report 11151955 (Version 1)
Quarter: 2015Q2

REPORT INFORMATION
  Report Type: Spontaneous
  Country: US (occurrence: None)
  Receive Date: 20150529
  Receipt Date: 20150529
  Transmission Date: 20150821
  Serious: Yes (Death, Hospitalization)
  Sender: FDA-Public Use
  Company Number: None

PATIENT
  Age: 80 Year
  Sex: Female
  Weight: 48 kg

DRUGS (1)
  1. SUNITINIB MALATE (SU011248 L-MALATE) [Suspect]
     Active Substance: SUNITINIB MALATE
     Dates: end: 20150116

REACTIONS (8)
  - Dehydration [None]
  - Encephalopathy [None]
  - Hepatic failure [None]
  - Respiratory failure [None]
  - Condition aggravated [None]
  - Pyrexia [None]
  - Acute kidney injury [None]
  - Hospice care [None]

NARRATIVE: CASE EVENT DATE: 20150127
